FAERS Safety Report 12435207 (Version 1)
Quarter: 2016Q2

REPORT INFORMATION
  Report Type: Spontaneous
  Country: US (occurrence: US)
  Receive Date: 20160603
  Receipt Date: 20160603
  Transmission Date: 20160815
  Serious: No
  Sender: FDA-Public Use
  Company Number: US-ROCHE-1572181

PATIENT
  Sex: Female

DRUGS (1)
  1. XELODA [Suspect]
     Active Substance: CAPECITABINE
     Indication: NEOPLASM MALIGNANT
     Dosage: 500MG, 3 TABLETS IN THE MORNING, 2 TABLETS AT BEDTIME
     Route: 048
     Dates: start: 201503

REACTIONS (1)
  - Diarrhoea [Unknown]
